FAERS Safety Report 12722713 (Version 2)
Quarter: 2016Q4

REPORT INFORMATION
  Report Type: Spontaneous
  Country: AU (occurrence: AU)
  Receive Date: 20160907
  Receipt Date: 20161031
  Transmission Date: 20170207
  Serious: No
  Sender: FDA-Public Use
  Company Number: AU-TEIKOKU PHARMA USA-TPU2016-00588

PATIENT
  Age: 58 Year
  Sex: Female

DRUGS (6)
  1. TERTROXIN [Concomitant]
  2. VERSATIS [Suspect]
     Active Substance: LIDOCAINE
     Indication: COMPLEX REGIONAL PAIN SYNDROME
     Route: 061
     Dates: start: 20160822, end: 20160824
  3. SERETIDE [Concomitant]
     Active Substance: FLUTICASONE PROPIONATE\SALMETEROL XINAFOATE
  4. CORTATE [Concomitant]
     Active Substance: HYDROCORTISONE
  5. NORSPAN [Concomitant]
     Active Substance: BUPRENORPHINE
     Route: 062
  6. VERSATIS [Suspect]
     Active Substance: LIDOCAINE
     Indication: PAIN

REACTIONS (5)
  - Dyspnoea [Recovered/Resolved]
  - Vision blurred [Recovered/Resolved]
  - Malaise [Recovered/Resolved]
  - Tachycardia [Recovered/Resolved]
  - Tremor [Recovered/Resolved]

NARRATIVE: CASE EVENT DATE: 20160824
